FAERS Safety Report 10407715 (Version 1)
Quarter: 2014Q1

REPORT INFORMATION
  Report Type: Spontaneous
  Country: US (occurrence: None)
  Receive Date: 20140131
  Receipt Date: 20140131
  Transmission Date: 20141002
  Serious: Yes (Other)
  Sender: FDA-Public Use
  Company Number: 1052454U

PATIENT
  Age: 20 Year
  Sex: Male

DRUGS (2)
  1. KEPPRA [Suspect]
     Dosage: 500 MG X 3 PILLS
  2. DEPAKOTE [Concomitant]

REACTIONS (1)
  - Grand mal convulsion [None]
